FAERS Safety Report 6824550-3 (Version None)
Quarter: 2010Q3

REPORT INFORMATION
  Report Type: 
  Country: None (occurrence: None)
  Receive Date: 20100708
  Receipt Date: 20070213
  Transmission Date: 20110219
  Serious: No
  Sender: FDA-Public Use
  Company Number: US-PFIZER INC-2006127605

PATIENT
  Sex: Female
  Weight: 89.81 kg

DRUGS (7)
  1. CHANTIX [Suspect]
     Indication: SMOKING CESSATION THERAPY
     Dates: start: 20061005
  2. WELLBUTRIN [Concomitant]
  3. PLAVIX [Concomitant]
  4. LISINOPRIL [Concomitant]
  5. BYETTA [Concomitant]
  6. TEMAZEPAM [Concomitant]
     Indication: SLEEP DISORDER
  7. ZYRTEC [Concomitant]

REACTIONS (3)
  - ABNORMAL DREAMS [None]
  - INCREASED APPETITE [None]
  - SLEEP DISORDER [None]
